FAERS Safety Report 25524759 (Version 1)
Quarter: 2025Q3

REPORT INFORMATION
  Report Type: Spontaneous
  Country: US (occurrence: US)
  Receive Date: 20250707
  Receipt Date: 20250707
  Transmission Date: 20251021
  Serious: No
  Sender: Kenvue
  Company Number: US-KENVUE-20250603878

PATIENT
  Age: 65 Year

DRUGS (5)
  1. PEPCID [Suspect]
     Active Substance: FAMOTIDINE
     Indication: Anaphylactic reaction
     Route: 065
     Dates: start: 20250603
  2. BENADRYL [Suspect]
     Active Substance: DIPHENHYDRAMINE HYDROCHLORIDE
     Indication: Anaphylactic reaction
     Route: 065
     Dates: start: 20250603
  3. ZYRTEC [Concomitant]
     Active Substance: CETIRIZINE HYDROCHLORIDE
     Indication: Hypersensitivity
     Route: 048
     Dates: start: 20250603, end: 20250603
  4. EPINEPHRINE [Concomitant]
     Active Substance: EPINEPHRINE
     Indication: Anaphylactic reaction
     Route: 065
     Dates: start: 20250603
  5. METHYLPREDNISOLONE [Concomitant]
     Active Substance: METHYLPREDNISOLONE
     Indication: Anaphylactic reaction
     Route: 065
     Dates: start: 20250603

REACTIONS (2)
  - Off label use [Unknown]
  - Therapeutic response unexpected [Unknown]

NARRATIVE: CASE EVENT DATE: 20250603
